APPROVED DRUG PRODUCT: XYLOCAINE
Active Ingredient: LIDOCAINE HYDROCHLORIDE
Strength: 2% **Federal Register determination that product was not discontinued or withdrawn for safety or effectiveness reasons**
Dosage Form/Route: JELLY;TOPICAL
Application: N008816 | Product #001
Applicant: EPIC PHARMA LLC
Approved: Approved Prior to Jan 1, 1982 | RLD: Yes | RS: No | Type: DISCN